FAERS Safety Report 7131052-6 (Version None)
Quarter: 2010Q4

REPORT INFORMATION
  Report Type: 
  Country: None (occurrence: None)
  Receive Date: 20101201
  Receipt Date: 20101122
  Transmission Date: 20110411
  Serious: Yes (Hospitalization, Other)
  Sender: FDA-Public Use
  Company Number: US-ASTRAZENECA-2010SE55713

PATIENT
  Age: 80 Year
  Sex: Female
  Weight: 77.1 kg

DRUGS (24)
  1. NEXIUM [Suspect]
     Indication: GASTROOESOPHAGEAL REFLUX DISEASE
     Route: 048
     Dates: start: 20070101, end: 20090401
  2. CELEBREX [Suspect]
     Indication: ARTHRITIS
     Route: 048
     Dates: end: 20091001
  3. CELEBREX [Suspect]
     Indication: PAIN
     Route: 048
     Dates: end: 20091001
  4. CELEBREX [Suspect]
     Indication: SURGERY
     Route: 048
     Dates: end: 20091001
  5. CELEBREX [Suspect]
     Indication: ARTHRALGIA
     Route: 048
     Dates: end: 20091001
  6. CELEBREX [Suspect]
     Indication: MENISCUS LESION
     Route: 048
     Dates: end: 20091001
  7. CELEBREX [Suspect]
     Indication: BACK PAIN
     Route: 048
     Dates: end: 20091001
  8. CELEBREX [Suspect]
     Route: 048
     Dates: start: 20091101
  9. CELEBREX [Suspect]
     Route: 048
     Dates: start: 20091101
  10. CELEBREX [Suspect]
     Route: 048
     Dates: start: 20091101
  11. CELEBREX [Suspect]
     Route: 048
     Dates: start: 20091101
  12. CELEBREX [Suspect]
     Route: 048
     Dates: start: 20091101
  13. CELEBREX [Suspect]
     Route: 048
     Dates: start: 20091101
  14. MIRAPEX [Concomitant]
  15. LYRICA [Concomitant]
     Indication: NEUROPATHY PERIPHERAL
     Dosage: 75 MG IN THE MORNING AND 150 MG AT NIGHT
     Dates: start: 20080101
  16. ASPIRIN [Concomitant]
  17. K-TAB [Concomitant]
     Indication: BLOOD POTASSIUM DECREASED
     Dates: start: 20070101
  18. ICAPS [Concomitant]
  19. OMEGA 3/VITAMIN E [Concomitant]
  20. GLUCOSAMINE W/CHONDROITIN SULFATES [Concomitant]
  21. VITAMIN E [Concomitant]
  22. SYNTHROID [Concomitant]
     Indication: HYPOTHYROIDISM
  23. SOMA [Concomitant]
     Indication: ARTHRALGIA
     Dosage: 350 MG DAILY AS NEEDED
  24. SOMA [Concomitant]
     Indication: INSOMNIA
     Dosage: 350 MG DAILY AS NEEDED

REACTIONS (7)
  - COUGH [None]
  - MENISCUS LESION [None]
  - OEDEMA PERIPHERAL [None]
  - PULMONARY OEDEMA [None]
  - RASH [None]
  - SMEAR CERVIX ABNORMAL [None]
  - URINARY INCONTINENCE [None]
